FAERS Safety Report 24646386 (Version 1)
Quarter: 2024Q4

REPORT INFORMATION
  Report Type: Spontaneous
  Country: CZ (occurrence: CZ)
  Receive Date: 20241121
  Receipt Date: 20241121
  Transmission Date: 20250114
  Serious: Yes (Other)
  Sender: MYLAN
  Company Number: CZ-MYLANLABS-2024M1103743

PATIENT
  Sex: Male

DRUGS (10)
  1. OXALIPLATIN [Suspect]
     Active Substance: OXALIPLATIN
     Indication: Adenocarcinoma
     Dosage: UNK (UNDERWENT 3 CYCLES)
     Route: 065
     Dates: start: 202002, end: 202007
  2. PACLITAXEL [Suspect]
     Active Substance: PACLITAXEL
     Indication: Adenocarcinoma
     Dosage: UNK (3 CYCLES)
     Route: 065
     Dates: start: 202202
  3. IRINOTECAN [Suspect]
     Active Substance: IRINOTECAN
     Indication: Adenocarcinoma
     Dosage: UNK
     Route: 065
     Dates: start: 202104
  4. DOCETAXEL [Suspect]
     Active Substance: DOCETAXEL
     Indication: Adenocarcinoma
     Dosage: UNK (UNDERWENT 3 CYCLES)
     Route: 065
     Dates: start: 202002, end: 202007
  5. FLUOROURACIL [Suspect]
     Active Substance: FLUOROURACIL
     Indication: Adenocarcinoma
     Dosage: UNK (UNDERWENT 3 CYCLES)
     Route: 065
     Dates: start: 202002, end: 202007
  6. LEUCOVORIN [Suspect]
     Active Substance: LEUCOVORIN\LEUCOVORIN CALCIUM
     Indication: Adenocarcinoma
     Dosage: UNK (UNDERWENT 3 CYCLES)
     Route: 065
     Dates: start: 202002, end: 202007
  7. RAMUCIRUMAB [Concomitant]
     Active Substance: RAMUCIRUMAB
     Dosage: UNK
     Route: 065
     Dates: start: 202202
  8. NIVOLUMAB [Concomitant]
     Active Substance: NIVOLUMAB
     Dosage: UNK
     Route: 065
     Dates: start: 202209
  9. TRIFLURIDINE [Concomitant]
     Active Substance: TRIFLURIDINE
     Dosage: 70 MILLIGRAM, BID (TWICE A DAY)
     Route: 065
     Dates: start: 202310
  10. TIPIRACIL [Concomitant]
     Active Substance: TIPIRACIL
     Dosage: 70 MILLIGRAM, BID (TWICE A DAY)
     Route: 065
     Dates: start: 202310

REACTIONS (3)
  - Neuropathy peripheral [Not Recovered/Not Resolved]
  - Asthenia [Unknown]
  - Haematotoxicity [Unknown]

NARRATIVE: CASE EVENT DATE: 20200101
